FAERS Safety Report 7446054-X (Version None)
Quarter: 2011Q2

REPORT INFORMATION
  Report Type: 
  Country: None (occurrence: None)
  Receive Date: 20110429
  Receipt Date: 20110420
  Transmission Date: 20111010
  Serious: Yes (Life-Threatening, Hospitalization, Other)
  Sender: FDA-Public Use
  Company Number: US-PFIZER INC-2011086730

PATIENT
  Sex: Female
  Weight: 65.306 kg

DRUGS (5)
  1. LYRICA [Suspect]
     Indication: SPINAL COLUMN INJURY
     Dosage: UNK
     Route: 048
  2. DARVOCET [Suspect]
  3. GLIPIZIDE [Concomitant]
     Indication: TYPE 2 DIABETES MELLITUS
     Dosage: UNK
  4. TEGRETOL [Suspect]
  5. LYRICA [Suspect]
     Indication: HEADACHE

REACTIONS (6)
  - CORONARY ARTERIAL STENT INSERTION [None]
  - TINNITUS [None]
  - OEDEMA PERIPHERAL [None]
  - SLEEP DISORDER [None]
  - HEADACHE [None]
  - HYPONATRAEMIA [None]
